FAERS Safety Report 5671116-7 (Version None)
Quarter: 2008Q1

REPORT INFORMATION
  Report Type: 
  Country: None (occurrence: None)
  Receive Date: 20080317
  Receipt Date: 20080317
  Transmission Date: 20080703
  Serious: Yes (Hospitalization)
  Sender: FDA-Public Use
  Company Number: None

PATIENT
  Sex: Female
  Weight: 75.6 kg

DRUGS (5)
  1. CYCLOPHOSPHAMIDE [Suspect]
     Dosage: 1105 MG
  2. CYTARABINE [Suspect]
     Dosage: 508 MG
  3. NEUPOGEN [Suspect]
     Dosage: 72 ML
  4. MERCAPTOPURINE [Suspect]
     Dosage: 1000 MG
  5. METHOTREXATE [Suspect]
     Dosage: 45 MG

REACTIONS (1)
  - PANCYTOPENIA [None]
